FAERS Safety Report 18622259 (Version 1)
Quarter: 2020Q4

REPORT INFORMATION
  Report Type: Spontaneous
  Country: US (occurrence: US)
  Receive Date: 20201216
  Receipt Date: 20201216
  Transmission Date: 20210114
  Serious: No
  Sender: FDA-Public Use
  Company Number: US-AJANTA PHARMA USA INC.-2103033

PATIENT
  Age: 41 Year
  Sex: Female
  Weight: 46.36 kg

DRUGS (9)
  1. ZOFRAN [Concomitant]
     Active Substance: ONDANSETRON HYDROCHLORIDE
  2. ELIQUIS [Concomitant]
     Active Substance: APIXABAN
  3. ENTYVIO [Concomitant]
     Active Substance: VEDOLIZUMAB
  4. VITAMIN D [Concomitant]
     Active Substance: VITAMIN D NOS
  5. FOLIC ACID. [Concomitant]
     Active Substance: FOLIC ACID
  6. METOPROLOL. [Concomitant]
     Active Substance: METOPROLOL
  7. VITAMIN C [Concomitant]
     Active Substance: ASCORBIC ACID
  8. DULOXETINE (ANDA 208706) [Suspect]
     Active Substance: DULOXETINE
     Indication: FIBROMYALGIA
     Route: 048
     Dates: start: 20200113
  9. METHOTREXATE. [Concomitant]
     Active Substance: METHOTREXATE

REACTIONS (2)
  - Diarrhoea [Not Recovered/Not Resolved]
  - Rash [Not Recovered/Not Resolved]

NARRATIVE: CASE EVENT DATE: 202001
